FAERS Safety Report 15847354 (Version 1)
Quarter: 2019Q1

REPORT INFORMATION
  Report Type: Report from Study
  Country: US (occurrence: US)
  Receive Date: 20190121
  Receipt Date: 20190121
  Transmission Date: 20190417
  Serious: No
  Sender: FDA-Public Use
  Company Number: US-IPSEN BIOPHARMACEUTICALS, INC.-2018-19598

PATIENT
  Age: 12 Year
  Sex: Female
  Weight: 44.8 kg

DRUGS (5)
  1. INCRELEX [Suspect]
     Active Substance: MECASERMIN
     Indication: BODY HEIGHT BELOW NORMAL
     Dosage: DOSE NOT REPORTED
     Route: 058
     Dates: start: 201601, end: 2018
  2. EPIDUO [Concomitant]
     Active Substance: ADAPALENE\BENZOYL PEROXIDE
     Dosage: NOT REPORTED
  3. INCRELEX [Suspect]
     Active Substance: MECASERMIN
     Indication: OFF LABEL USE
  4. DRYSOL SOLUTION [Concomitant]
     Dosage: NOT REPORTED
  5. CLINADAMYCIN GEL [Concomitant]
     Dosage: NOT REPORTED

REACTIONS (4)
  - Off label use [Unknown]
  - Hair disorder [Not Recovered/Not Resolved]
  - Hyperhidrosis [Unknown]
  - Product administration interrupted [Unknown]

NARRATIVE: CASE EVENT DATE: 201601
